FAERS Safety Report 6241341-5 (Version None)
Quarter: 2009Q2

REPORT INFORMATION
  Report Type: 
  Country: None (occurrence: None)
  Receive Date: 20090623
  Receipt Date: 20090611
  Transmission Date: 20091009
  Serious: Yes (Hospitalization)
  Sender: FDA-Public Use
  Company Number: US-EISAI INC.-E7272-00028-SPO-US

PATIENT
  Sex: Female

DRUGS (1)
  1. ONTAK [Suspect]
     Route: 041
     Dates: start: 20090218, end: 20090403

REACTIONS (2)
  - EMBOLIC STROKE [None]
  - SEPSIS [None]
